FAERS Safety Report 9397131 (Version 1)
Quarter: 2013Q3

REPORT INFORMATION
  Report Type: Spontaneous
  Country: US (occurrence: US)
  Receive Date: 20130712
  Receipt Date: 20130712
  Transmission Date: 20140515
  Serious: No
  Sender: FDA-Public Use
  Company Number: US-PFIZER INC-2013204224

PATIENT
  Sex: Female

DRUGS (1)
  1. LYRICA [Suspect]
     Dosage: UNK
     Dates: start: 2013

REACTIONS (6)
  - Somnolence [Unknown]
  - Vision blurred [Unknown]
  - Constipation [Unknown]
  - Dizziness [Unknown]
  - Weight increased [Unknown]
  - Pain [Unknown]
